FAERS Safety Report 22224539 (Version 8)
Quarter: 2025Q2

REPORT INFORMATION
  Report Type: Spontaneous
  Country: US (occurrence: US)
  Receive Date: 20230418
  Receipt Date: 20250623
  Transmission Date: 20250716
  Serious: No
  Sender: PFIZER
  Company Number: US-PFIZER INC-202200004604

PATIENT
  Age: 80 Year
  Sex: Female
  Weight: 64.399 kg

DRUGS (11)
  1. XELJANZ XR [Suspect]
     Active Substance: TOFACITINIB CITRATE
     Indication: Rheumatoid arthritis
     Dosage: 11 MG, DAILY
     Route: 048
  2. ALEVE [Concomitant]
     Active Substance: NAPROXEN SODIUM
  3. NAPROXEN [Concomitant]
     Active Substance: NAPROXEN
  4. HYDROXYCHLOROQUINE [Concomitant]
     Active Substance: HYDROXYCHLOROQUINE
  5. CLOBETASOL [Concomitant]
     Active Substance: CLOBETASOL
  6. EZETIMIBE [Concomitant]
     Active Substance: EZETIMIBE
  7. LISINOPRIL [Concomitant]
     Active Substance: LISINOPRIL
  8. LOVASTATIN [Concomitant]
     Active Substance: LOVASTATIN
  9. PATADAY [Concomitant]
     Active Substance: OLOPATADINE HYDROCHLORIDE
  10. STOOL SOFTENER (DOCUSATE) [Concomitant]
     Active Substance: DOCUSATE
  11. NASAL [SODIUM CHLORIDE] [Concomitant]

REACTIONS (1)
  - Eczema [Unknown]
